FAERS Safety Report 8610913-2 (Version None)
Quarter: 2012Q3

REPORT INFORMATION
  Report Type: 
  Country: None (occurrence: None)
  Receive Date: 20120802
  Receipt Date: 20120727
  Transmission Date: 20120928
  Serious: Yes (Life-Threatening, Other)
  Sender: FDA-Public Use
  Company Number: DSA_58551_2012

PATIENT
  Sex: Male

DRUGS (6)
  1. FLOMAX [Concomitant]
  2. LORAZEPAM [Concomitant]
  3. ZANAFLEX [Concomitant]
  4. OXYCODONE HCL [Concomitant]
  5. XENAZINE [Suspect]
     Indication: HUNTINGTON'S DISEASE
     Dosage: (25 MG BID ORAL)
     Route: 048
     Dates: start: 20111017
  6. HYDROXYZINE [Concomitant]

REACTIONS (1)
  - CONVULSION [None]
